FAERS Safety Report 26113628 (Version 3)
Quarter: 2025Q4

REPORT INFORMATION
  Report Type: Spontaneous
  Country: US (occurrence: US)
  Receive Date: 20251202
  Receipt Date: 20251217
  Transmission Date: 20260117
  Serious: Yes (Other)
  Sender: MYLAN
  Company Number: US-MYLANLABS-2025M1098305

PATIENT
  Sex: Female
  Weight: 90.7 kg

DRUGS (1)
  1. LEVOTHYROXINE SODIUM [Suspect]
     Active Substance: LEVOTHYROXINE SODIUM
     Indication: Thyroid disorder
     Dosage: UNK

REACTIONS (16)
  - Heart rate decreased [Unknown]
  - Gait disturbance [Unknown]
  - Constipation [Unknown]
  - Skin odour abnormal [Unknown]
  - Skin wrinkling [Unknown]
  - Amnesia [Unknown]
  - Dry skin [Unknown]
  - Cognitive disorder [Unknown]
  - Somnolence [Unknown]
  - Asthenia [Unknown]
  - Illness [Unknown]
  - Alopecia [Unknown]
  - Hyperhidrosis [Unknown]
  - Abdominal distension [Unknown]
  - Recalled product administered [Unknown]
  - Drug ineffective [Unknown]
